FAERS Safety Report 7564514-8 (Version None)
Quarter: 2011Q2

REPORT INFORMATION
  Report Type: 
  Country: None (occurrence: None)
  Receive Date: 20110622
  Receipt Date: 20100707
  Transmission Date: 20111010
  Serious: Yes (Hospitalization, Other)
  Sender: FDA-Public Use
  Company Number: US-MYLANLABS-2009S1018119

PATIENT
  Age: 26 Year
  Sex: Male

DRUGS (13)
  1. CLOZAPINE [Suspect]
     Indication: BIPOLAR DISORDER
     Route: 048
     Dates: end: 20100423
  2. CLOZAPINE [Suspect]
     Route: 048
     Dates: end: 20100423
  3. CLOZAPINE [Suspect]
     Route: 048
     Dates: start: 20100423, end: 20100504
  4. TOPAMAX [Concomitant]
  5. ATROPINE [Concomitant]
  6. CLOZAPINE [Suspect]
     Route: 048
     Dates: start: 20100423, end: 20100504
  7. CLOZAPINE [Suspect]
     Indication: PSYCHOTIC DISORDER
     Route: 048
     Dates: end: 20100423
  8. CLOZAPINE [Suspect]
     Route: 048
     Dates: end: 20100423
  9. DEPAKOTE [Concomitant]
  10. SYNTHROID [Concomitant]
  11. DESMOPRESSIN [Concomitant]
  12. ATIVAN [Concomitant]
  13. ADDERALL 10 [Concomitant]

REACTIONS (2)
  - PSYCHOTIC DISORDER [None]
  - GRANULOCYTOPENIA [None]
